FAERS Safety Report 7708581-7 (Version None)
Quarter: 2011Q3

REPORT INFORMATION
  Report Type: 
  Country: None (occurrence: None)
  Receive Date: 20110825
  Receipt Date: 20110815
  Transmission Date: 20111222
  Serious: Yes (Other)
  Sender: FDA-Public Use
  Company Number: US-MYLANLABS-2011S1017220

PATIENT
  Age: 49 Year
  Sex: Female
  Weight: 86.18 kg

DRUGS (8)
  1. OMEGA 3 /00931501/ [Concomitant]
  2. ENBREL [Concomitant]
  3. METHOTREXATE [Suspect]
  4. BYSTOLIC [Concomitant]
  5. CITRACAL /00751520/ [Concomitant]
  6. HYDROCHLOROTHIAZIDE [Concomitant]
  7. CELEBREX [Suspect]
     Indication: RHEUMATOID ARTHRITIS
     Route: 048
     Dates: start: 19991201
  8. DOXAZOSIN MESYLATE [Suspect]
     Route: 048

REACTIONS (3)
  - FEMUR FRACTURE [None]
  - PELVIC FRACTURE [None]
  - DEVICE BREAKAGE [None]
